FAERS Safety Report 4294089-0 (Version None)
Quarter: 2004Q1

REPORT INFORMATION
  Report Type: 
  Country: None (occurrence: None)
  Receive Date: 20040212
  Receipt Date: 20040212
  Transmission Date: 20041129
  Serious: Yes (Other)
  Sender: FDA-Public Use
  Company Number: None

PATIENT
  Age: 43 Year
  Sex: Female
  Weight: 100.6985 kg

DRUGS (2)
  1. AZATHIOPRINE [Suspect]
     Indication: MULTIPLE SCLEROSIS
     Dosage: 50 MG FOUR BID
     Dates: start: 20030201, end: 20040201
  2. PROZAC [Concomitant]

REACTIONS (2)
  - DIARRHOEA [None]
  - PHARMACEUTICAL PRODUCT COMPLAINT [None]
